FAERS Safety Report 6290579-X (Version None)
Quarter: 2009Q4

REPORT INFORMATION
  Report Type: 
  Country: None (occurrence: None)
  Receive Date: 20090728
  Receipt Date: 20090728
  Transmission Date: 20100525
  Serious: No
  Sender: FDA-Public Use
  Company Number: None

PATIENT
  Age: 61 Year
  Sex: Male

DRUGS (10)
  1. TRICOR [Suspect]
     Dates: start: 20070102, end: 20070429
  2. DOXAZOSIN [Suspect]
     Dates: start: 20070102, end: 20070429
  3. BYETTA [Suspect]
     Dates: start: 20070227, end: 20070417
  4. LIPITOR [Concomitant]
  5. INSULIN [Concomitant]
  6. GLUCOPHAGE [Concomitant]
  7. ASPIRIN [Concomitant]
  8. DEMADEX [Concomitant]
  9. LISINOPRIL [Concomitant]
  10. IMDUR [Concomitant]

REACTIONS (17)
  - ASCITES [None]
  - ASTHENIA [None]
  - BILE DUCT OBSTRUCTION [None]
  - CHOLELITHIASIS [None]
  - CHOLESTASIS [None]
  - DIABETIC FOOT [None]
  - DIALYSIS [None]
  - DYSPNOEA EXERTIONAL [None]
  - FLUID OVERLOAD [None]
  - HEPATIC FAILURE [None]
  - HEPATOTOXICITY [None]
  - INTERNATIONAL NORMALISED RATIO INCREASED [None]
  - LIVER INJURY [None]
  - NAUSEA [None]
  - OEDEMA PERIPHERAL [None]
  - RASH [None]
  - RENAL FAILURE [None]
